FAERS Safety Report 10194564 (Version 1)
Quarter: 2014Q2

REPORT INFORMATION
  Report Type: Spontaneous
  Country: US (occurrence: US)
  Receive Date: 20140526
  Receipt Date: 20140526
  Transmission Date: 20141212
  Serious: No
  Sender: FDA-Public Use
  Company Number: US-BIOGENIDEC-2014BI043972

PATIENT
  Age: 33 Year
  Sex: Female

DRUGS (7)
  1. TECFIDERA [Suspect]
     Indication: MULTIPLE SCLEROSIS
     Route: 048
     Dates: start: 20140418
  2. NORCO [Concomitant]
  3. XANAX [Concomitant]
  4. MOTRIN [Concomitant]
  5. BACLOFEN [Concomitant]
  6. PEPCID [Concomitant]
  7. ZANTAC [Concomitant]

REACTIONS (3)
  - Headache [Not Recovered/Not Resolved]
  - Photosensitivity reaction [Not Recovered/Not Resolved]
  - Nausea [Not Recovered/Not Resolved]
